FAERS Safety Report 5095966-3 (Version None)
Quarter: 2006Q3

REPORT INFORMATION
  Report Type: 
  Country: None (occurrence: None)
  Receive Date: 20060830
  Receipt Date: 20060817
  Transmission Date: 20061208
  Serious: Yes (Other)
  Sender: FDA-Public Use
  Company Number: 2006100817

PATIENT
  Age: 74 Year
  Sex: Male
  Weight: 99.7913 kg

DRUGS (2)
  1. SUTENT [Suspect]
     Indication: RENAL CELL CARCINOMA STAGE UNSPECIFIED
     Dosage: 50 MG (50 MG, DAILY),
  2. DILTIAZEM HCL [Concomitant]

REACTIONS (7)
  - HEPATIC ENZYME INCREASED [None]
  - LUNG DISORDER [None]
  - PAIN [None]
  - PULMONARY CONGESTION [None]
  - RESPIRATORY TRACT IRRITATION [None]
  - SKIN EXFOLIATION [None]
  - STOMACH DISCOMFORT [None]
